FAERS Safety Report 7007649-0 (Version None)
Quarter: 2010Q3

REPORT INFORMATION
  Report Type: 
  Country: None (occurrence: None)
  Receive Date: 20100922
  Receipt Date: 20100911
  Transmission Date: 20110219
  Serious: Yes (Hospitalization)
  Sender: FDA-Public Use
  Company Number: US-PFIZER INC-2010120164

PATIENT
  Sex: Female

DRUGS (4)
  1. NORVASC [Suspect]
     Indication: HYPERTENSION
     Dosage: 10 MG, 1X/DAY
     Dates: end: 20100501
  2. BENICAR [Suspect]
     Indication: HYPERTENSION
     Dosage: 20 MG, 1X/DAY
     Route: 048
     Dates: start: 20100910, end: 20100910
  3. BENICAR HCT [Suspect]
     Indication: HYPERTENSION
     Dosage: 40/25 MG ONCE DAILY
     Route: 048
     Dates: start: 20080101, end: 20100101
  4. BENICAR HCT [Suspect]
     Dosage: 40/25 MG ONCE DAILY
     Route: 048
     Dates: start: 20100701, end: 20100701

REACTIONS (1)
  - COELIAC DISEASE [None]
